FAERS Safety Report 11226781 (Version 1)
Quarter: 2015Q2

REPORT INFORMATION
  Report Type: Spontaneous
  Country: US (occurrence: US)
  Receive Date: 20150630
  Receipt Date: 20150630
  Transmission Date: 20150821
  Serious: No
  Sender: FDA-Public Use
  Company Number: US-SA-2015SA051578

PATIENT
  Age: 33 Year
  Sex: Female

DRUGS (1)
  1. AUBAGIO [Suspect]
     Active Substance: TERIFLUNOMIDE
     Indication: MULTIPLE SCLEROSIS
     Route: 065
     Dates: start: 201501

REACTIONS (4)
  - Insomnia [Unknown]
  - Diarrhoea [Unknown]
  - Abdominal discomfort [Unknown]
  - Pain in extremity [Unknown]

NARRATIVE: CASE EVENT DATE: 201504
